FAERS Safety Report 23307290 (Version 1)
Quarter: 2023Q4

REPORT INFORMATION
  Report Type: Report from Study
  Country: US (occurrence: US)
  Receive Date: 20231218
  Receipt Date: 20231218
  Transmission Date: 20240110
  Serious: Yes (Other)
  Sender: FDA-Public Use
  Company Number: US-GILEAD-2023-0654951

PATIENT
  Sex: Male

DRUGS (1)
  1. BICTEGRAVIR\EMTRICITABINE\TENOFOVIR ALAFENAMIDE [Suspect]
     Active Substance: BICTEGRAVIR\EMTRICITABINE\TENOFOVIR ALAFENAMIDE
     Indication: HIV infection
     Dosage: 1 DOSAGE FORM [50/200/25]
     Route: 048
     Dates: start: 2020

REACTIONS (5)
  - Anaplastic large cell lymphoma T- and null-cell types stage IV [Unknown]
  - Insomnia [Unknown]
  - Abdominal discomfort [Unknown]
  - Anxiety [Unknown]
  - Heart rate increased [Unknown]
